FAERS Safety Report 5982258-0 (Version None)
Quarter: 2008Q4

REPORT INFORMATION
  Report Type: 
  Country: None (occurrence: None)
  Receive Date: 20081208
  Receipt Date: 20081204
  Transmission Date: 20090506
  Serious: Yes (Life-Threatening, Hospitalization, Disabling, Other)
  Sender: FDA-Public Use
  Company Number: A0759078A

PATIENT
  Age: 51 Year
  Sex: Female

DRUGS (10)
  1. LAMOTRIGINE [Suspect]
     Route: 048
     Dates: start: 20080801, end: 20081201
  2. LEVOTHYROXINE SODIUM [Concomitant]
  3. PREMARIN [Concomitant]
  4. TOPIRAMATE [Concomitant]
     Dosage: 200MG TWICE PER DAY
  5. PROLIXIN [Concomitant]
  6. BENADRYL [Concomitant]
  7. COGENTIN [Concomitant]
  8. ANTI-PSYCHOTIC MEDICATION [Concomitant]
  9. ANTICHOLINERGIC [Concomitant]
  10. UNSPECIFIED ANTIBIOTIC [Concomitant]

REACTIONS (15)
  - ABASIA [None]
  - APHASIA [None]
  - BLOOD CREATINE PHOSPHOKINASE INCREASED [None]
  - CONFUSIONAL STATE [None]
  - DEPRESSED LEVEL OF CONSCIOUSNESS [None]
  - DYSPHAGIA [None]
  - DYSTONIA [None]
  - ERYTHEMA [None]
  - IRON DEFICIENCY [None]
  - MUSCLE RIGIDITY [None]
  - NUTRITIONAL CONDITION ABNORMAL [None]
  - RASH [None]
  - RHABDOMYOLYSIS [None]
  - URINARY TRACT INFECTION [None]
  - WEIGHT DECREASED [None]
